FAERS Safety Report 7335167-9 (Version None)
Quarter: 2011Q1

REPORT INFORMATION
  Report Type: 
  Country: None (occurrence: None)
  Receive Date: 20110307
  Receipt Date: 20110228
  Transmission Date: 20110831
  Serious: Yes (Hospitalization, Other)
  Sender: FDA-Public Use
  Company Number: US-JNJFOC-20091206406

PATIENT
  Sex: Male

DRUGS (3)
  1. LEVOFLOXACIN [Suspect]
     Indication: ABDOMINAL PAIN
     Route: 042
  2. LEVAQUIN [Suspect]
     Indication: DIVERTICULITIS
     Route: 048
  3. LEVOFLOXACIN [Suspect]
     Indication: DIVERTICULITIS
     Route: 042

REACTIONS (2)
  - EXTREMITY CONTRACTURE [None]
  - TENDON RUPTURE [None]
